FAERS Safety Report 10514913 (Version 2)
Quarter: 2021Q1

REPORT INFORMATION
  Report Type: Spontaneous
  Country: NZ (occurrence: NZ)
  Receive Date: 20141013
  Receipt Date: 20210310
  Transmission Date: 20210419
  Serious: Yes (Other)
  Sender: FDA-Public Use
  Company Number: NZ-ABBVIE-14P-118-1294682-00

PATIENT
  Age: 2 Year
  Sex: Female

DRUGS (18)
  1. RANITIDINE. [Concomitant]
     Active Substance: RANITIDINE
     Indication: PRODUCT USED FOR UNKNOWN INDICATION
  2. CHARCOAL ACTIVATED [Concomitant]
     Active Substance: ACTIVATED CHARCOAL
     Indication: PRODUCT USED FOR UNKNOWN INDICATION
  3. ESCHSCHOLZIA CALIFORNICA. [Concomitant]
     Active Substance: ESCHSCHOLZIA CALIFORNICA
     Indication: PRODUCT USED FOR UNKNOWN INDICATION
  4. CARMINE [Concomitant]
     Active Substance: COCHINEAL
     Indication: PRODUCT USED FOR UNKNOWN INDICATION
  5. OMEPRAZOLE. [Concomitant]
     Active Substance: OMEPRAZOLE
     Indication: PRODUCT USED FOR UNKNOWN INDICATION
     Route: 065
  6. MAGNESIUM STEARATE [Concomitant]
     Active Substance: MAGNESIUM STEARATE
     Indication: PRODUCT USED FOR UNKNOWN INDICATION
  7. MELISSA OFFICINALIS [Concomitant]
     Active Substance: HERBALS\HOMEOPATHICS\MELISSA OFFICINALIS
     Indication: PRODUCT USED FOR UNKNOWN INDICATION
  8. MELATONIN [Concomitant]
     Active Substance: MELATONIN
     Indication: PRODUCT USED FOR UNKNOWN INDICATION
  9. SPIRULINA [Concomitant]
     Active Substance: HERBALS\SPIRULINA
     Indication: PRODUCT USED FOR UNKNOWN INDICATION
  10. TALC [Concomitant]
     Active Substance: TALC
     Indication: PRODUCT USED FOR UNKNOWN INDICATION
  11. POLYSORBATE 80. [Concomitant]
     Active Substance: POLYSORBATE 80
     Indication: PRODUCT USED FOR UNKNOWN INDICATION
  12. MICROCRYSTALLINE CELLULOSE [Concomitant]
     Active Substance: CELLULOSE, MICROCRYSTALLINE
     Indication: PRODUCT USED FOR UNKNOWN INDICATION
  13. POLYETHYLENE GLYCOL [Concomitant]
     Active Substance: POLYETHYLENE GLYCOLS
     Indication: PRODUCT USED FOR UNKNOWN INDICATION
  14. VALPROATE SODIUM. [Suspect]
     Active Substance: VALPROATE SODIUM
     Indication: PRODUCT USED FOR UNKNOWN INDICATION
     Route: 065
  15. MALTODEXTRIN [Concomitant]
     Active Substance: MALTODEXTRIN
     Indication: PRODUCT USED FOR UNKNOWN INDICATION
  16. PASSIFLORA INCARNATA [Concomitant]
     Active Substance: HERBALS\HOMEOPATHICS\PASSIFLORA INCARNATA FLOWERING TOP
     Indication: PRODUCT USED FOR UNKNOWN INDICATION
  17. SILICON DIOXIDE [Concomitant]
     Active Substance: SILICON DIOXIDE
     Indication: PRODUCT USED FOR UNKNOWN INDICATION
  18. PYRIDOXINE [Concomitant]
     Active Substance: PYRIDOXINE
     Indication: PRODUCT USED FOR UNKNOWN INDICATION

REACTIONS (1)
  - Fanconi syndrome [Unknown]
